FAERS Safety Report 11154826 (Version 3)
Quarter: 2015Q3

REPORT INFORMATION
  Report Type: Spontaneous
  Country: US (occurrence: None)
  Receive Date: 20150529
  Receipt Date: 20150727
  Transmission Date: 20151125
  Serious: Yes (Other)
  Sender: FDA-Public Use
  Company Number: ADR-2015-00798

PATIENT
  Age: 49 Year
  Sex: Male

DRUGS (2)
  1. LIORESAL [Suspect]
     Active Substance: BACLOFEN
     Indication: MUSCLE SPASTICITY
  2. BACLOFEN ORAL [Suspect]
     Active Substance: BACLOFEN
     Dosage: UP TO 80 MG QD

REACTIONS (20)
  - Condition aggravated [None]
  - Gait disturbance [None]
  - Device dislocation [None]
  - Medical device site swelling [None]
  - Therapeutic response changed [None]
  - Implant site inflammation [None]
  - Muscle spasms [None]
  - Medical device site inflammation [None]
  - Device connection issue [None]
  - Back pain [None]
  - Muscle spasticity [None]
  - Muscle tone disorder [None]
  - Hypertonia [None]
  - Pruritus [None]
  - Device failure [None]
  - Underdose [None]
  - Fall [None]
  - Device breakage [None]
  - Post lumbar puncture syndrome [None]
  - Implant site pain [None]
